FAERS Safety Report 9628841 (Version 1)
Quarter: 2013Q4

REPORT INFORMATION
  Report Type: Spontaneous
  Country: PR (occurrence: PR)
  Receive Date: 20131017
  Receipt Date: 20131017
  Transmission Date: 20140711
  Serious: No
  Sender: FDA-Public Use
  Company Number: PR-BAYER-2013-125309

PATIENT
  Age: 58 Year
  Sex: Male

DRUGS (3)
  1. GADAVIST [Suspect]
     Indication: NUCLEAR MAGNETIC RESONANCE IMAGING
     Dosage: 6 ML, ONCE
     Dates: start: 20131011, end: 20131011
  2. GADAVIST [Suspect]
     Indication: DISORDER OF ORBIT
  3. GADAVIST [Suspect]
     Indication: EYE SWELLING

REACTIONS (1)
  - Urticaria [Recovered/Resolved]
